FAERS Safety Report 7804439-3 (Version None)
Quarter: 2011Q4

REPORT INFORMATION
  Report Type: 
  Country: None (occurrence: None)
  Receive Date: 20111010
  Receipt Date: 20111006
  Transmission Date: 20120403
  Serious: Yes (Death, Life-Threatening, Hospitalization)
  Sender: FDA-Public Use
  Company Number: JP-B.I. PHARMACEUTICALS,INC./RIDGEFIELD-2011-BP-22270NB

PATIENT
  Sex: Female
  Weight: 42.4 kg

DRUGS (4)
  1. PLAVIX [Suspect]
     Indication: CEREBROVASCULAR ACCIDENT PROPHYLAXIS
     Dosage: 75 MG
     Route: 048
     Dates: start: 20110815, end: 20110821
  2. HEPARIN [Suspect]
     Indication: CEREBROVASCULAR ACCIDENT PROPHYLAXIS
     Dosage: 10000 U
     Route: 042
     Dates: start: 20110815, end: 20110821
  3. RADICUT [Suspect]
     Indication: CEREBROVASCULAR ACCIDENT PROPHYLAXIS
     Dosage: 60 MG
     Route: 042
     Dates: start: 20110815, end: 20110820
  4. PRADAXA [Suspect]
     Indication: ATRIAL FIBRILLATION
     Dosage: 220 MG
     Route: 048
     Dates: start: 20110822, end: 20110908

REACTIONS (5)
  - LARGE INTESTINAL HAEMORRHAGE [None]
  - COLITIS ISCHAEMIC [None]
  - SEPTIC SHOCK [None]
  - ILEUS PARALYTIC [None]
  - DIVERTICULUM INTESTINAL [None]
